FAERS Safety Report 13385213 (Version 3)
Quarter: 2019Q1

REPORT INFORMATION
  Report Type: Spontaneous
  Country: US (occurrence: US)
  Receive Date: 20170329
  Receipt Date: 20190115
  Transmission Date: 20190417
  Serious: Yes (Hospitalization)
  Sender: FDA-Public Use
  Company Number: US-BIOGEN-2017BI00377507

PATIENT
  Sex: Male

DRUGS (4)
  1. TECFIDERA [Suspect]
     Active Substance: DIMETHYL FUMARATE
     Route: 065
     Dates: start: 20140811
  2. TECFIDERA [Suspect]
     Active Substance: DIMETHYL FUMARATE
     Route: 065
     Dates: start: 20141201, end: 20180501
  3. TECFIDERA [Suspect]
     Active Substance: DIMETHYL FUMARATE
     Dosage: 240 MAINTENANCE DOSE
     Route: 048
  4. TECFIDERA [Suspect]
     Active Substance: DIMETHYL FUMARATE
     Indication: MULTIPLE SCLEROSIS
     Dosage: 120 STARTING DOSE
     Route: 048

REACTIONS (6)
  - Seizure [Recovered/Resolved]
  - Flushing [Not Recovered/Not Resolved]
  - Hypotension [Recovered/Resolved]
  - Hypertension [Recovered/Resolved]
  - Fall [Recovered/Resolved]
  - Multiple sclerosis relapse [Not Recovered/Not Resolved]
